FAERS Safety Report 15541346 (Version 1)
Quarter: 2018Q4

REPORT INFORMATION
  Report Type: Spontaneous
  Country: US (occurrence: US)
  Receive Date: 20181023
  Receipt Date: 20181023
  Transmission Date: 20190205
  Serious: No
  Sender: FDA-Public Use
  Company Number: US-MYLANLABS-2018M1074848

PATIENT
  Sex: Female
  Weight: 52 kg

DRUGS (2)
  1. TEMAZEPAM CAPSULES USP [Suspect]
     Active Substance: TEMAZEPAM
     Indication: INSOMNIA
     Dosage: UNK
     Route: 048
  2. MELATONIN [Suspect]
     Active Substance: MELATONIN
     Indication: INSOMNIA
     Dosage: UNK
     Route: 048

REACTIONS (2)
  - Product use issue [Not Recovered/Not Resolved]
  - Wrong technique in product usage process [Not Recovered/Not Resolved]
